FAERS Safety Report 8334621-0 (Version None)
Quarter: 2012Q2

REPORT INFORMATION
  Report Type: 
  Country: None (occurrence: None)
  Receive Date: 20120503
  Receipt Date: 20120502
  Transmission Date: 20120825
  Serious: No
  Sender: FDA-Public Use
  Company Number: US-BAYER-2012-043029

PATIENT
  Sex: Female

DRUGS (2)
  1. HORMONES NOS [Concomitant]
  2. MIRENA [Suspect]
     Dosage: 20 MCG/24HR, UNK
     Route: 015

REACTIONS (1)
  - NIGHT SWEATS [None]
